FAERS Safety Report 9112528 (Version 3)
Quarter: 2013Q2

REPORT INFORMATION
  Report Type: Spontaneous
  Country: DE (occurrence: DE)
  Receive Date: 20130211
  Receipt Date: 20130611
  Transmission Date: 20140414
  Serious: Yes (Other)
  Sender: FDA-Public Use
  Company Number: PHHY2013DE011161

PATIENT
  Age: 68 Year
  Sex: Female

DRUGS (7)
  1. GLIVEC [Suspect]
     Indication: CHRONIC MYELOID LEUKAEMIA
     Dosage: 400 MG, PER DAY
     Route: 048
     Dates: start: 2006
  2. METOPROLOL [Concomitant]
     Indication: HEART RATE IRREGULAR
     Dosage: 50 MG, PER DAY
     Route: 048
     Dates: start: 201110
  3. METOPROLOL [Concomitant]
     Dosage: UNK
  4. THIAMAZOLE [Concomitant]
     Indication: HYPERTHYROIDISM
     Dosage: 5 MG, PER DAY
     Route: 048
     Dates: start: 201110
  5. THIAMAZOLE [Concomitant]
     Dosage: UNK UKN, UNK
  6. ASS [Concomitant]
     Dosage: 100 MG, PER DAY
     Route: 048
     Dates: start: 20111116
  7. ASS [Concomitant]
     Dosage: UNK UKN, UNK

REACTIONS (5)
  - Epstein-Barr virus infection [Not Recovered/Not Resolved]
  - Atrial fibrillation [Not Recovered/Not Resolved]
  - Blood pressure increased [Not Recovered/Not Resolved]
  - Face oedema [Not Recovered/Not Resolved]
  - Weight increased [Not Recovered/Not Resolved]
